FAERS Safety Report 18555703 (Version 3)
Quarter: 2021Q1

REPORT INFORMATION
  Report Type: Spontaneous
  Country: JP (occurrence: JP)
  Receive Date: 20201127
  Receipt Date: 20210127
  Transmission Date: 20210419
  Serious: Yes (Death, Hospitalization, Other)
  Sender: FDA-Public Use
  Company Number: JP-EXELIXIS-CABO-20035454

PATIENT
  Age: 5 Decade
  Sex: Male

DRUGS (1)
  1. CABOMETYX [Suspect]
     Active Substance: CABOZANTINIB S-MALATE
     Indication: RENAL CELL CARCINOMA RECURRENT
     Dosage: 60 MG
     Route: 048
     Dates: start: 20200915, end: 20201028

REACTIONS (2)
  - Pneumonia [Fatal]
  - Tumour inflammation [Recovered/Resolved]

NARRATIVE: CASE EVENT DATE: 20201028
